FAERS Safety Report 9818222 (Version 4)
Quarter: 2014Q1

REPORT INFORMATION
  Report Type: Spontaneous
  Country: US (occurrence: US)
  Receive Date: 20140115
  Receipt Date: 20140219
  Transmission Date: 20141002
  Serious: Yes (Life-Threatening, Hospitalization, Other)
  Sender: FDA-Public Use
  Company Number: US-009507513-1401USA004788

PATIENT
  Sex: Female
  Weight: 104.31 kg

DRUGS (10)
  1. JANUVIA [Suspect]
     Indication: TYPE 2 DIABETES MELLITUS
     Dosage: 100 MG, QD
     Route: 048
     Dates: start: 20090424, end: 20120709
  2. GLIPIZIDE [Concomitant]
     Dosage: 10 MG, BID
     Route: 048
     Dates: end: 20120709
  3. GLIPIZIDE [Concomitant]
     Dosage: 20 MG, BID
     Route: 048
  4. DIOVAN [Concomitant]
     Indication: HYPERTENSION
     Dosage: UNK
     Dates: start: 20081117
  5. ASPIRIN [Concomitant]
     Indication: CARDIOVASCULAR EVENT PROPHYLAXIS
     Dosage: 81 MG, QD
     Route: 048
     Dates: start: 20040218
  6. KLOR-CON [Concomitant]
     Indication: BLOOD POTASSIUM DECREASED
     Dosage: 10 MEQ, QD
     Route: 048
     Dates: start: 20071218
  7. LANTUS [Concomitant]
     Indication: DIABETES MELLITUS
     Dosage: 100 UNITS/ML
     Route: 058
  8. NOVOLOG [Concomitant]
     Indication: DIABETES MELLITUS
  9. LANTUS (SOLOSTAR) [Concomitant]
     Indication: DIABETES MELLITUS
  10. METFORMIN [Concomitant]
     Indication: DIABETES MELLITUS
     Dosage: 1000 MG, BID

REACTIONS (13)
  - Pancreatic carcinoma [Unknown]
  - Pancreatectomy [Unknown]
  - Pancreatic operation [Unknown]
  - Hypertensive heart disease [Unknown]
  - Supraventricular tachycardia [Unknown]
  - Cardiac ablation [Unknown]
  - Left ventricular hypertrophy [Unknown]
  - Hysterectomy [Unknown]
  - Oedema peripheral [Unknown]
  - Supraventricular tachycardia [Unknown]
  - Pancreatic cyst [Unknown]
  - Diabetes mellitus inadequate control [Unknown]
  - Blood cholesterol increased [Unknown]
